FAERS Safety Report 17634722 (Version 2)
Quarter: 2020Q2

REPORT INFORMATION
  Report Type: Report from Study
  Country: US (occurrence: US)
  Receive Date: 20200406
  Receipt Date: 20200514
  Transmission Date: 20200713
  Serious: Yes (Other)
  Sender: FDA-Public Use
  Company Number: US-BAUSCH-BL-2020-009878

PATIENT
  Age: 73 Year
  Sex: Female

DRUGS (3)
  1. LOTEMAX SM [Suspect]
     Active Substance: LOTEPREDNOL ETABONATE
     Indication: PRODUCT USE IN UNAPPROVED INDICATION
  2. LOTEMAX SM [Suspect]
     Active Substance: LOTEPREDNOL ETABONATE
     Indication: DRY EYE
     Dosage: 3 TO 4 TIMES DAILY AFTER SURGERY
     Route: 065
  3. REFRESH [Suspect]
     Active Substance: UNSPECIFIED INGREDIENT
     Indication: PRODUCT USED FOR UNKNOWN INDICATION
     Route: 065

REACTIONS (7)
  - Corneal abrasion [Unknown]
  - Product use in unapproved indication [Unknown]
  - Intraocular pressure test abnormal [Unknown]
  - Drug ineffective for unapproved indication [Unknown]
  - Cataract operation [Unknown]
  - Eye disorder [Unknown]
  - Lacrimation increased [Unknown]

NARRATIVE: CASE EVENT DATE: 20191220
